FAERS Safety Report 7627553-4 (Version None)
Quarter: 2011Q3

REPORT INFORMATION
  Report Type: 
  Country: None (occurrence: None)
  Receive Date: 20110721
  Receipt Date: 20110712
  Transmission Date: 20111222
  Serious: Yes (Death)
  Sender: FDA-Public Use
  Company Number: US-TYCO HEALTHCARE/MALLINCKRODT-T201101400

PATIENT
  Sex: Male

DRUGS (15)
  1. ALPRAZOLAM [Concomitant]
     Dosage: 1 MG, UNK
  2. HYDROMORPHONE HCL [Concomitant]
     Indication: BREAKTHROUGH PAIN
     Dosage: 4 MG, QID
  3. EXALGO [Suspect]
     Dosage: 4 - 16 MG  TABS AT BEDTIME
     Route: 048
     Dates: start: 20100916
  4. POTASSIUM CHLORIDE [Concomitant]
     Dosage: 20 MEQ, UNK
  5. FUROSEMIDE [Concomitant]
     Dosage: 40 MG, UNK
  6. EXALGO [Suspect]
     Indication: PAIN
     Dosage: 6 - 16 MG TABS AT BEDTIME
     Route: 048
     Dates: start: 20110623, end: 20110624
  7. EXALGO [Suspect]
     Dosage: 5 - 16 MG TABS AT BEDTIME
     Route: 048
     Dates: start: 20101227, end: 20110623
  8. NITROSTAT [Concomitant]
  9. FENTANYL [Concomitant]
     Dosage: 100 UG/HR,
  10. WARFARIN SODIUM [Concomitant]
     Dosage: 5 MG, UNK
  11. ANTIBIOTICS [Concomitant]
  12. FLONASE [Concomitant]
  13. METOLAZONE [Concomitant]
     Dosage: 10 MG, UNK
  14. TRAZODONE HCL [Concomitant]
     Dosage: 100 MG, UNK
  15. WARFARIN SODIUM [Concomitant]
     Dosage: 1 MG, UNK

REACTIONS (3)
  - RENAL FAILURE ACUTE [None]
  - OEDEMA [None]
  - PULMONARY EMBOLISM [None]
